FAERS Safety Report 19265432 (Version 4)
Quarter: 2021Q2

REPORT INFORMATION
  Report Type: Spontaneous
  Country: DE (occurrence: DE)
  Receive Date: 20210517
  Receipt Date: 20210611
  Transmission Date: 20210717
  Serious: Yes (Other)
  Sender: FDA-Public Use
  Company Number: DE-EUSA PHARMA (NETHERLANDS) B.V.-2021DE000131

PATIENT

DRUGS (3)
  1. SYLVANT [Suspect]
     Active Substance: SILTUXIMAB
     Dosage: 400 MILLIGRAM (1 DOSE IN 2 MONTHS)
     Route: 065
     Dates: start: 20201023
  2. SYLVANT [Suspect]
     Active Substance: SILTUXIMAB
     Indication: CASTLEMAN^S DISEASE
     Dosage: UNK MILLIGRAM
     Route: 065
     Dates: start: 202009
  3. SYLVANT [Suspect]
     Active Substance: SILTUXIMAB
     Dosage: 500 MILLIGRAM
     Route: 065
     Dates: start: 20210525

REACTIONS (3)
  - Leukopenia [Recovering/Resolving]
  - Mucosal disorder [Recovering/Resolving]
  - Off label use [Unknown]

NARRATIVE: CASE EVENT DATE: 20201023
